FAERS Safety Report 5507031-9 (Version None)
Quarter: 2007Q4

REPORT INFORMATION
  Report Type: 
  Country: None (occurrence: None)
  Receive Date: 20071105
  Receipt Date: 20071015
  Transmission Date: 20080405
  Serious: No
  Sender: FDA-Public Use
  Company Number: US-BOEHRINGER INGELHEIM PHARMACEUTICALS, INC.-2007-BP-22814BP

PATIENT
  Sex: Male

DRUGS (8)
  1. SPIRIVA [Suspect]
     Indication: CHRONIC OBSTRUCTIVE PULMONARY DISEASE
     Route: 055
     Dates: start: 20050201, end: 20070201
  2. SPIRIVA [Suspect]
     Route: 055
     Dates: start: 20070901, end: 20070901
  3. ADVAIR DISKUS 100/50 [Concomitant]
  4. ALBUTEROL [Concomitant]
  5. SINGULAIR [Concomitant]
  6. LEVOXYL [Concomitant]
  7. METFORMIN [Concomitant]
  8. LISINOPRIL [Concomitant]

REACTIONS (1)
  - HYPOSMIA [None]
